FAERS Safety Report 25136274 (Version 2)
Quarter: 2025Q1

REPORT INFORMATION
  Report Type: Spontaneous
  Country: US (occurrence: US)
  Receive Date: 20250328
  Receipt Date: 20250328
  Transmission Date: 20250409
  Serious: Yes (Other)
  Sender: SANOFI AVENTIS
  Company Number: US-SA-2025SA087547

PATIENT
  Age: 41 Year
  Sex: Male
  Weight: 77 kg

DRUGS (1)
  1. ALTUVIIIO [Suspect]
     Active Substance: EFANESOCTOCOG ALFA
     Indication: Factor VIII deficiency
     Route: 065
     Dates: start: 20230401

REACTIONS (3)
  - Coronary arterial stent insertion [Unknown]
  - Vascular access site pseudoaneurysm [Recovered/Resolved]
  - Vascular access site swelling [Recovered/Resolved]

NARRATIVE: CASE EVENT DATE: 20250324
